FAERS Safety Report 18980296 (Version 1)
Quarter: 2021Q1

REPORT INFORMATION
  Report Type: Spontaneous
  Country: US (occurrence: US)
  Receive Date: 20210308
  Receipt Date: 20210308
  Transmission Date: 20210420
  Serious: Yes (Hospitalization, Other)
  Sender: FDA-Public Use
  Company Number: US-BRISTOL-MYERS SQUIBB COMPANY-BMS-2021-019064

PATIENT
  Sex: Male

DRUGS (1)
  1. COUMADIN [Suspect]
     Active Substance: WARFARIN SODIUM
     Indication: DEEP VEIN THROMBOSIS
     Dosage: ONCE DAILY
     Route: 065
     Dates: end: 20210223

REACTIONS (5)
  - Eye haemorrhage [Unknown]
  - Vertigo [Unknown]
  - Decreased appetite [Unknown]
  - International normalised ratio fluctuation [Unknown]
  - Antiphospholipid antibodies positive [Unknown]
